FAERS Safety Report 5786527-9 (Version None)
Quarter: 2008Q2

REPORT INFORMATION
  Report Type: 
  Country: None (occurrence: None)
  Receive Date: 20080624
  Receipt Date: 20080530
  Transmission Date: 20081010
  Serious: No
  Sender: FDA-Public Use
  Company Number: US-BOEHRINGER INGELHEIM GMBH, GERMANY-2008-BP-04489BP

PATIENT
  Age: 79 Year
  Sex: Female
  Weight: 64 kg

DRUGS (8)
  1. SPIRIVA [Suspect]
     Indication: CHRONIC OBSTRUCTIVE PULMONARY DISEASE
  2. ALBUTEROL SULFATE [Concomitant]
  3. ATROVENT [Concomitant]
  4. DUONEB [Concomitant]
  5. PREDNISONE [Concomitant]
  6. BUFFERIN [Concomitant]
  7. LORAZEPAM [Concomitant]
  8. NITROGLYCERIN [Concomitant]

REACTIONS (2)
  - CARDIAC DISORDER [None]
  - HEART RATE INCREASED [None]
